FAERS Safety Report 19116033 (Version 1)
Quarter: 2021Q2

REPORT INFORMATION
  Report Type: Other
  Country: ES (occurrence: ES)
  Receive Date: 20210409
  Receipt Date: 20210409
  Transmission Date: 20210717
  Serious: Yes (Death)
  Sender: FDA-Public Use
  Company Number: ES-VALIDUS PHARMACEUTICALS LLC-ES-2021VAL001068

PATIENT
  Age: 92 Year
  Sex: Female

DRUGS (4)
  1. FUROSEMIDE. [Suspect]
     Active Substance: FUROSEMIDE
     Indication: CARDIAC FAILURE
     Dosage: 80 MG, QD (STRENGTH:40 MG) (1 TABLET IN BREAKFAST AND 1 TABLET IN FOOD)
     Route: 048
     Dates: start: 20150616, end: 20190620
  2. SPIRONOLACTONE. [Suspect]
     Active Substance: SPIRONOLACTONE
     Indication: CARDIAC FAILURE
     Dosage: 25 MG, QD (STRENGTH :25 MG)
     Route: 048
     Dates: start: 20180724, end: 20190610
  3. CHLORTALIDONE [Suspect]
     Active Substance: CHLORTHALIDONE
     Indication: HYPERTENSION
     Dosage: 100 MG, QW (STRENGTH: 50 MG) (A TABLET IN THE SNACK ONLY ON MONDAYS AND THURSDAYS)
     Route: 048
     Dates: start: 20190506, end: 20190610
  4. LOSARTAN POTASSIUM. [Suspect]
     Active Substance: LOSARTAN POTASSIUM
     Indication: CARDIAC FAILURE
     Dosage: 12.5 MG, QD (STRENGTH :12.5 MG)
     Route: 048
     Dates: start: 20170711, end: 20190610

REACTIONS (3)
  - Drug interaction [Unknown]
  - Dehydration [Fatal]
  - Hyponatraemia [Fatal]

NARRATIVE: CASE EVENT DATE: 20190610
